FAERS Safety Report 7824435-X (Version None)
Quarter: 2011Q4

REPORT INFORMATION
  Report Type: 
  Country: None (occurrence: None)
  Receive Date: 20111019
  Receipt Date: 20111011
  Transmission Date: 20120403
  Serious: Yes (Other)
  Sender: FDA-Public Use
  Company Number: US-VERTEX PHARMACEUTICALS INC.-AE-2011-001280

PATIENT
  Sex: Male
  Weight: 77.18 kg

DRUGS (5)
  1. INCIVEK [Suspect]
     Indication: HEPATITIS C
     Route: 048
     Dates: start: 20110712, end: 20110831
  2. PEGINTERFERON [Concomitant]
     Indication: HEPATITIS C
     Dates: start: 20110712, end: 20110824
  3. KLONOPIN [Concomitant]
  4. NADOLOL [Concomitant]
  5. RIBAVIRIN [Concomitant]
     Indication: HEPATITIS C
     Dates: start: 20110712, end: 20110824

REACTIONS (4)
  - ACUTE GENERALISED EXANTHEMATOUS PUSTULOSIS [None]
  - THROMBOCYTOPENIA [None]
  - BLOOD CREATININE INCREASED [None]
  - ANAEMIA [None]
